FAERS Safety Report 11751600 (Version 1)
Quarter: 2015Q4

REPORT INFORMATION
  Report Type: Spontaneous
  Country: US (occurrence: US)
  Receive Date: 20151118
  Receipt Date: 20151118
  Transmission Date: 20160304
  Serious: Yes (Hospitalization)
  Sender: FDA-Public Use
  Company Number: US-MYLANLABS-2014SP005191

PATIENT
  Sex: Female
  Weight: 61.24 kg

DRUGS (7)
  1. PHENERGAN [Concomitant]
     Active Substance: PROMETHAZINE HYDROCHLORIDE
  2. SUTENT [Suspect]
     Active Substance: SUNITINIB MALATE
  3. PACLITAXEL. [Suspect]
     Active Substance: PACLITAXEL
     Dosage: UNK
     Route: 042
     Dates: start: 201403, end: 201403
  4. AVASTIN [Suspect]
     Active Substance: BEVACIZUMAB
     Dates: start: 20140401, end: 20140812
  5. TYLENOL [Concomitant]
     Active Substance: ACETAMINOPHEN
  6. XANAX [Concomitant]
     Active Substance: ALPRAZOLAM
  7. VICODIN [Concomitant]
     Active Substance: ACETAMINOPHEN\HYDROCODONE BITARTRATE

REACTIONS (1)
  - Haemoglobin decreased [Recovered/Resolved]
